FAERS Safety Report 6203364-1 (Version None)
Quarter: 2009Q2

REPORT INFORMATION
  Report Type: 
  Country: None (occurrence: None)
  Receive Date: 20090521
  Receipt Date: 20090506
  Transmission Date: 20091009
  Serious: Yes (Hospitalization)
  Sender: FDA-Public Use
  Company Number: 2009001413

PATIENT
  Age: 75 Year
  Sex: Male

DRUGS (9)
  1. ERLOTINIB (ERLOTINIB) (TABLET) (ERLOTINIB) [Suspect]
     Indication: COLON CANCER
     Dosage: (100 MG),ORAL
     Route: 048
     Dates: start: 20081009, end: 20081127
  2. CETUXIMAB (CETUXIMAB) [Suspect]
  3. DIAMICRON (GLICLAZIDE) [Concomitant]
  4. LOPERAMIDE (LOPERAMIDE) [Concomitant]
  5. MINOCYCLINE HCL [Concomitant]
  6. ERTYHROMYCIN (ERYTHROMYCIN) [Concomitant]
  7. BETAMETHASONE [Concomitant]
  8. VISINE (TETRYZOLINE HYDROCHLORIDE) [Concomitant]
  9. AUGMENTIN FORTE DUO [Concomitant]

REACTIONS (8)
  - ALANINE AMINOTRANSFERASE INCREASED [None]
  - ASPARTATE AMINOTRANSFERASE INCREASED [None]
  - BILIRUBIN CONJUGATED INCREASED [None]
  - BLOOD ALKALINE PHOSPHATASE INCREASED [None]
  - BLOOD BILIRUBIN INCREASED [None]
  - GAMMA-GLUTAMYLTRANSFERASE INCREASED [None]
  - HEPATIC FUNCTION ABNORMAL [None]
  - JAUNDICE CHOLESTATIC [None]
